FAERS Safety Report 23190122 (Version 1)
Quarter: 2023Q4

REPORT INFORMATION
  Report Type: Spontaneous
  Country: AT (occurrence: AT)
  Receive Date: 20231116
  Receipt Date: 20231116
  Transmission Date: 20240110
  Serious: Yes (Other)
  Sender: FDA-Public Use
  Company Number: AT-CELLTRION INC.-2023AT021984

PATIENT

DRUGS (20)
  1. RITUXIMAB [Suspect]
     Active Substance: RITUXIMAB
     Indication: Diffuse large B-cell lymphoma stage III
     Dosage: UNK, START DATE: OCT-2020, AND END DATE: JAN-2021, AS A PART OF R-MINI-CHOP REGIMEN, 6 X CYCLE
     Route: 065
  2. RITUXIMAB [Suspect]
     Active Substance: RITUXIMAB
     Indication: Macular degeneration
  3. RITUXIMAB [Suspect]
     Active Substance: RITUXIMAB
     Indication: Hypercholesterolaemia
  4. RITUXIMAB [Suspect]
     Active Substance: RITUXIMAB
     Indication: Osteoporosis
  5. PREDNISONE [Suspect]
     Active Substance: PREDNISONE
     Indication: Macular degeneration
     Dosage: UNK, START DATE: OCT-2020, AND END DATE: JAN-2021, AS A PART OF R-MINI-CHOP REGIMEN, 6 X CYCLE
     Route: 065
  6. PREDNISONE [Suspect]
     Active Substance: PREDNISONE
     Indication: Diffuse large B-cell lymphoma stage III
  7. PREDNISONE [Suspect]
     Active Substance: PREDNISONE
     Indication: Hypercholesterolaemia
  8. PREDNISONE [Suspect]
     Active Substance: PREDNISONE
     Indication: Osteoporosis
  9. CYCLOPHOSPHAMIDE [Suspect]
     Active Substance: CYCLOPHOSPHAMIDE
     Indication: Macular degeneration
     Dosage: UNK, START DATE: OCT-2020, AND END DATE: JAN-2021, AS A PART OF R-MINI-CHOP REGIMEN, 6 X CYCLE
     Route: 065
  10. CYCLOPHOSPHAMIDE [Suspect]
     Active Substance: CYCLOPHOSPHAMIDE
     Indication: Diffuse large B-cell lymphoma stage III
  11. CYCLOPHOSPHAMIDE [Suspect]
     Active Substance: CYCLOPHOSPHAMIDE
     Indication: Hypercholesterolaemia
  12. CYCLOPHOSPHAMIDE [Suspect]
     Active Substance: CYCLOPHOSPHAMIDE
     Indication: Osteoporosis
  13. DOXORUBICIN [Suspect]
     Active Substance: DOXORUBICIN
     Indication: Macular degeneration
     Dosage: UNK, START DATE: OCT-2020, AND END DATE: JAN-2021, AS A PART OF R-MINI-CHOP REGIMEN, 6 X CYCLE
     Route: 065
  14. DOXORUBICIN [Suspect]
     Active Substance: DOXORUBICIN
     Indication: Diffuse large B-cell lymphoma stage III
  15. DOXORUBICIN [Suspect]
     Active Substance: DOXORUBICIN
     Indication: Hypercholesterolaemia
  16. DOXORUBICIN [Suspect]
     Active Substance: DOXORUBICIN
     Indication: Osteoporosis
  17. VINCRISTINE [Suspect]
     Active Substance: VINCRISTINE
     Indication: Macular degeneration
     Dosage: UNK, START DATE: OCT-2020, AND END DATE: JAN-2021, AS A PART OF R-MINI-CHOP REGIMEN, 6 X CYCLE
     Route: 065
  18. VINCRISTINE [Suspect]
     Active Substance: VINCRISTINE
     Indication: Diffuse large B-cell lymphoma stage III
  19. VINCRISTINE [Suspect]
     Active Substance: VINCRISTINE
     Indication: Hypercholesterolaemia
  20. VINCRISTINE [Suspect]
     Active Substance: VINCRISTINE
     Indication: Osteoporosis

REACTIONS (14)
  - Renal amyloidosis [Unknown]
  - Renal cancer stage II [Unknown]
  - Renal tubular atrophy [Unknown]
  - Eosinophilic colitis [Unknown]
  - Nephrotic syndrome [Unknown]
  - Non-Hodgkin^s lymphoma [Unknown]
  - Primary amyloidosis [Unknown]
  - Pneumonia [Unknown]
  - Cytomegalovirus colitis [Unknown]
  - Ulcer [Unknown]
  - Disease recurrence [Unknown]
  - Intestinal fibrosis [Unknown]
  - Herpes zoster [Unknown]
  - Intentional product use issue [Unknown]
